FAERS Safety Report 17017629 (Version 1)
Quarter: 2019Q4

REPORT INFORMATION
  Report Type: Spontaneous
  Country: GB (occurrence: GB)
  Receive Date: 20191111
  Receipt Date: 20191111
  Transmission Date: 20200122
  Serious: Yes (Other)
  Sender: FDA-Public Use
  Company Number: GB-TAKEDA-2019TEU013319

PATIENT
  Age: 20 Year
  Sex: Male
  Weight: 92 kg

DRUGS (8)
  1. MEBEVERINE [Concomitant]
     Active Substance: MEBEVERINE
     Dosage: 405 MILLIGRAM, QD
     Dates: start: 20190925
  2. CYCLIZINE [Concomitant]
     Active Substance: CYCLIZINE
     Dosage: 150 MILLIGRAM, QD
     Dates: start: 20190812
  3. TRIMETHOPRIM. [Concomitant]
     Active Substance: TRIMETHOPRIM
     Dosage: 400 MILLIGRAM, QD
     Dates: start: 20190927
  4. RANITIDINE. [Concomitant]
     Active Substance: RANITIDINE
     Dosage: 300 MILLIGRAM, QD
     Dates: start: 20190916
  5. LANSOPRAZOLE. [Suspect]
     Active Substance: LANSOPRAZOLE
     Indication: DYSPEPSIA
     Dosage: 15 MILLIGRAM
     Route: 065
     Dates: start: 20190929, end: 20191001
  6. PEPPERMINT OIL [Concomitant]
     Active Substance: PEPPERMINT OIL
     Dosage: 0.6 MILLILITER, QD
     Dates: start: 20190925
  7. RANITIDINE. [Concomitant]
     Active Substance: RANITIDINE
     Dosage: 300 MILLIGRAM, QD
     Dates: start: 20190812
  8. ACIDEX                             /01521901/ [Concomitant]
     Active Substance: CALCIUM CARBONATE\SODIUM ALGINATE\SODIUM BICARBONATE
     Dosage: 10 MILLILITER
     Dates: start: 20190925

REACTIONS (2)
  - Wheezing [Recovered/Resolved]
  - Respiratory rate increased [Recovered/Resolved]

NARRATIVE: CASE EVENT DATE: 20190929
